FAERS Safety Report 8078532-7 (Version None)
Quarter: 2012Q1

REPORT INFORMATION
  Report Type: 
  Country: None (occurrence: None)
  Receive Date: 20120127
  Receipt Date: 20110304
  Transmission Date: 20120608
  Serious: No
  Sender: FDA-Public Use
  Company Number: US-ABBOTT-11P-163-0694826-00

PATIENT
  Age: 55 Year
  Sex: Female

DRUGS (2)
  1. AMLOD-DENEZ [Concomitant]
     Indication: HYPERTENSION
     Dosage: 5/20MG DAILY
  2. HUMIRA [Suspect]
     Indication: PSORIASIS
     Dates: start: 20100901

REACTIONS (3)
  - DEVICE MALFUNCTION [None]
  - INJECTION SITE PAIN [None]
  - PSORIASIS [None]
